FAERS Safety Report 10680655 (Version 2)
Quarter: 2015Q4

REPORT INFORMATION
  Report Type: Spontaneous
  Country: US (occurrence: US)
  Receive Date: 20141229
  Receipt Date: 20151228
  Transmission Date: 20160304
  Serious: Yes (Hospitalization, Other)
  Sender: FDA-Public Use
  Company Number: US-SA-2014SA118775

PATIENT
  Age: 65 Year
  Sex: Female

DRUGS (10)
  1. PLAVIX [Suspect]
     Active Substance: CLOPIDOGREL BISULFATE
     Indication: MYOCARDIAL INFARCTION
     Route: 048
     Dates: start: 20071112
  2. SYNTHROID [Concomitant]
     Active Substance: LEVOTHYROXINE SODIUM
     Route: 048
  3. PLAVIX [Suspect]
     Active Substance: CLOPIDOGREL BISULFATE
     Indication: STENT PLACEMENT
     Route: 048
     Dates: start: 20071112
  4. LOTENSIN [Concomitant]
     Active Substance: BENAZEPRIL HYDROCHLORIDE
     Route: 048
  5. CRESTOR [Concomitant]
     Active Substance: ROSUVASTATIN CALCIUM
  6. LANTUS [Concomitant]
     Active Substance: INSULIN GLARGINE
     Dosage: DOSE:50 UNIT(S)
     Route: 058
  7. PLAVIX [Suspect]
     Active Substance: CLOPIDOGREL BISULFATE
     Indication: ACUTE CORONARY SYNDROME
     Route: 048
     Dates: start: 20071112
  8. NOVOLOG [Concomitant]
     Active Substance: INSULIN ASPART
     Dosage: DOSE:10 UNIT(S)
     Route: 058
  9. ASPIRIN. [Concomitant]
     Active Substance: ASPIRIN
     Route: 048
     Dates: start: 200701
  10. LOPRESSOR [Concomitant]
     Active Substance: METOPROLOL TARTRATE
     Route: 048

REACTIONS (3)
  - Visual impairment [Recovering/Resolving]
  - Gastrointestinal haemorrhage [Recovering/Resolving]
  - Eye haemorrhage [Recovering/Resolving]

NARRATIVE: CASE EVENT DATE: 20080404
